FAERS Safety Report 8219146 (Version 2)
Quarter: 2012Q4

REPORT INFORMATION
  Report Type: 
  Country: US (occurrence: US)
  Receive Date: 20111101
  Receipt Date: 20121023
  Transmission Date: 20130627
  Serious: No
  Sender: FDA-Public Use
  Company Number: US-AMGEN-USASP2011026844

PATIENT
  Age: 67 Year
  Sex: Male
  Weight: 94.33 kg

DRUGS (8)
  1. ENBREL [Suspect]
     Indication: ANKYLOSING SPONDYLITIS
     Dosage: 50 mg, qwk
     Route: 058
     Dates: start: 20110509
  2. SIMVASTATIN [Concomitant]
  3. RAMIPRIL [Concomitant]
  4. CARVEDILOL [Concomitant]
  5. NEXIUM                             /01479302/ [Concomitant]
  6. ASPIRIN [Concomitant]
  7. NAPROXEN [Concomitant]
  8. GLUCOSAMINE [Concomitant]

REACTIONS (3)
  - Mobility decreased [Not Recovered/Not Resolved]
  - Back pain [Not Recovered/Not Resolved]
  - Musculoskeletal stiffness [Not Recovered/Not Resolved]
